FAERS Safety Report 5982404-9 (Version None)
Quarter: 2008Q4

REPORT INFORMATION
  Report Type: 
  Country: None (occurrence: None)
  Receive Date: 20081208
  Receipt Date: 20081202
  Transmission Date: 20090506
  Serious: Yes (Hospitalization)
  Sender: FDA-Public Use
  Company Number: US-BIOGENIDEC-2008BI032407

PATIENT
  Age: 61 Year
  Sex: Female

DRUGS (2)
  1. AVONEX [Suspect]
     Indication: MULTIPLE SCLEROSIS
     Route: 030
     Dates: start: 19971001
  2. AVONEX [Suspect]
     Route: 030
     Dates: start: 20080201

REACTIONS (4)
  - ESCHERICHIA URINARY TRACT INFECTION [None]
  - FLUID RETENTION [None]
  - PNEUMONIA [None]
  - STAPHYLOCOCCAL INFECTION [None]
